FAERS Safety Report 25964840 (Version 1)
Quarter: 2025Q4

REPORT INFORMATION
  Report Type: Spontaneous
  Country: EU (occurrence: EU)
  Receive Date: 20251027
  Receipt Date: 20251027
  Transmission Date: 20260117
  Serious: Yes (Hospitalization)
  Sender: PFIZER
  Company Number: None

PATIENT
  Sex: Female

DRUGS (6)
  1. PROVERA [Suspect]
     Active Substance: MEDROXYPROGESTERONE ACETATE
     Dosage: 24 HOURS
     Route: 048
  2. FOLLITROPIN\LUTROPIN ALFA [Suspect]
     Active Substance: FOLLITROPIN\LUTROPIN ALFA
     Dosage: 24 HOURS
     Route: 058
  3. CHORIOGONADOTROPIN ALFA [Suspect]
     Active Substance: CHORIOGONADOTROPIN ALFA
     Dosage: 250 UG
     Dates: start: 20250910, end: 20250910
  4. BUSERELIN ACETATE [Suspect]
     Active Substance: BUSERELIN ACETATE
     Dosage: 0.5 ML
     Dates: start: 20250910, end: 20250910
  5. MIDAZOLAM [Concomitant]
     Active Substance: MIDAZOLAM
     Dosage: 4 MG
     Route: 042
  6. FENTANYL [Concomitant]
     Active Substance: FENTANYL
     Dosage: 100 UG
     Route: 042

REACTIONS (1)
  - Ovarian hyperstimulation syndrome [Recovered/Resolved]

NARRATIVE: CASE EVENT DATE: 20250101
